FAERS Safety Report 7204073-2 (Version None)
Quarter: 2010Q4

REPORT INFORMATION
  Report Type: 
  Country: None (occurrence: None)
  Receive Date: 20101230
  Receipt Date: 20101221
  Transmission Date: 20110411
  Serious: Yes (Other)
  Sender: FDA-Public Use
  Company Number: US-ELI_LILLY_AND_COMPANY-US201009005928

PATIENT
  Sex: Male
  Weight: 28.118 kg

DRUGS (2)
  1. STRATTERA [Suspect]
     Indication: ATTENTION DEFICIT/HYPERACTIVITY DISORDER
     Dosage: 80 MG, DAILY (1/D)
     Route: 048
     Dates: start: 20100910, end: 20100923
  2. PREDNISONE [Concomitant]
     Dosage: 1 D/F, UNK

REACTIONS (1)
  - IDIOPATHIC THROMBOCYTOPENIC PURPURA [None]
